FAERS Safety Report 7056657-2 (Version None)
Quarter: 2010Q4

REPORT INFORMATION
  Report Type: 
  Country: None (occurrence: None)
  Receive Date: 20101019
  Receipt Date: 20101004
  Transmission Date: 20110411
  Serious: Yes (Hospitalization)
  Sender: FDA-Public Use
  Company Number: 2010-3484

PATIENT
  Age: 68 Year
  Sex: Female

DRUGS (4)
  1. APOMORPHINE (APO-GO) (APOMORPHINE HYDROCHLORIDE) (APOMORPHINE HYDROCHL [Suspect]
     Indication: PARKINSON'S DISEASE
     Dosage: SINGLE DOSE
  2. ROPINIROLE [Suspect]
     Indication: PARKINSON'S DISEASE
  3. MIRTAZAPINE [Concomitant]
  4. LEVODOPA/BENSERAZIDE (LEVODOPA W/ BENSERAZIDE) [Concomitant]

REACTIONS (2)
  - DELUSION [None]
  - TREMOR [None]
